FAERS Safety Report 6195083-5 (Version None)
Quarter: 2009Q2

REPORT INFORMATION
  Report Type: 
  Country: None (occurrence: None)
  Receive Date: 20090519
  Receipt Date: 20090515
  Transmission Date: 20091009
  Serious: Yes (Hospitalization)
  Sender: FDA-Public Use
  Company Number: JP-ASTRAZENECA-2009AP02896

PATIENT
  Age: 73 Year
  Sex: Female
  Weight: 52 kg

DRUGS (6)
  1. OMEPRAL [Suspect]
     Indication: REFLUX OESOPHAGITIS
     Route: 048
     Dates: start: 20090317, end: 20090414
  2. MEVALOTIN [Concomitant]
     Indication: HYPERLIPIDAEMIA
     Route: 048
     Dates: start: 19920606
  3. CETAPRIL [Concomitant]
     Indication: HYPERTENSION
     Route: 048
     Dates: start: 19950513
  4. AMOBAN [Concomitant]
     Indication: INSOMNIA
     Route: 048
     Dates: start: 20070110
  5. TAKEPRON [Concomitant]
  6. UFT [Concomitant]

REACTIONS (1)
  - TOXIC SKIN ERUPTION [None]
